FAERS Safety Report 7488942-4 (Version None)
Quarter: 2011Q2

REPORT INFORMATION
  Report Type: 
  Country: None (occurrence: None)
  Receive Date: 20110518
  Receipt Date: 20110506
  Transmission Date: 20111010
  Serious: Yes (Hospitalization, Other)
  Sender: FDA-Public Use
  Company Number: ES-UCBSA-032346

PATIENT
  Age: 45 Year
  Sex: Female

DRUGS (7)
  1. TEGRETOL [Concomitant]
     Indication: EPILEPSY
     Route: 048
  2. NOIAFREN [Concomitant]
     Indication: EPILEPSY
     Route: 048
     Dates: start: 20080901
  3. VIMPAT [Suspect]
     Route: 048
     Dates: start: 20091201, end: 20100201
  4. TEGRETOL [Concomitant]
     Dosage: DOSE DECREASED
     Route: 048
  5. VIMPAT [Suspect]
     Indication: EPILEPSY
     Route: 048
     Dates: start: 20091001, end: 20091130
  6. AERIUS [Concomitant]
     Route: 048
     Dates: start: 20060901
  7. FERPLEX [Concomitant]
     Indication: ANAEMIA
     Route: 048
     Dates: start: 20071001

REACTIONS (2)
  - EPILEPSY [None]
  - DEPRESSION [None]
